FAERS Safety Report 16773017 (Version 1)
Quarter: 2019Q3

REPORT INFORMATION
  Report Type: Spontaneous
  Country: FR (occurrence: FR)
  Receive Date: 20190904
  Receipt Date: 20190904
  Transmission Date: 20191005
  Serious: Yes (Hospitalization)
  Sender: FDA-Public Use
  Company Number: FR-ANIPHARMA-2019-FR-000192

PATIENT
  Age: 47 Year
  Sex: Female
  Weight: 110 kg

DRUGS (5)
  1. METFORMIN [Suspect]
     Active Substance: METFORMIN HYDROCHLORIDE
     Dosage: 2550 MG DAILY
     Route: 048
     Dates: start: 2017, end: 20190712
  2. UVEDOSE [Concomitant]
     Active Substance: CHOLECALCIFEROL
     Dosage: 100 000 UI
     Route: 048
  3. CANDESARTAN CILEXETIL. [Suspect]
     Active Substance: CANDESARTAN CILEXETIL
     Indication: HYPERTENSION
     Dosage: 24 MG UNK
     Route: 048
  4. METOJECT [Suspect]
     Active Substance: METHOTREXATE SODIUM
     Dosage: 20 MG WEEK
     Route: 058
     Dates: start: 20171018, end: 20190709
  5. SPECIAFOLDINE [Concomitant]
     Active Substance: FOLIC ACID
     Dosage: 5 MG UNK
     Route: 048

REACTIONS (1)
  - Pancreatitis acute [Recovered/Resolved]

NARRATIVE: CASE EVENT DATE: 20190629
